FAERS Safety Report 14514226 (Version 3)
Quarter: 2018Q3

REPORT INFORMATION
  Report Type: Spontaneous
  Country: US (occurrence: US)
  Receive Date: 20180209
  Receipt Date: 20180718
  Transmission Date: 20181010
  Serious: Yes (Other)
  Sender: FDA-Public Use
  Company Number: US-VIFOR (INTERNATIONAL) INC.-VIT-2018-01476

PATIENT
  Sex: Male

DRUGS (10)
  1. FUROSEMIDE. [Concomitant]
     Active Substance: FUROSEMIDE
  2. COLECALCIFEROL [Concomitant]
     Active Substance: CHOLECALCIFEROL
  3. VELTASSA [Suspect]
     Active Substance: PATIROMER
     Dosage: DOSE DECREASED.
     Route: 048
     Dates: start: 20180710
  4. SPIRONOLACTONE. [Concomitant]
     Active Substance: SPIRONOLACTONE
  5. DOXAZOSIN MESILATE [Concomitant]
     Active Substance: DOXAZOSIN MESYLATE
  6. LASIX [Concomitant]
     Active Substance: FUROSEMIDE
  7. VALSARTAN. [Concomitant]
     Active Substance: VALSARTAN
  8. VELTASSA [Suspect]
     Active Substance: PATIROMER
     Indication: HYPERKALAEMIA
     Route: 048
     Dates: start: 20160921
  9. VELTASSA [Suspect]
     Active Substance: PATIROMER
  10. DIOVAN [Concomitant]
     Active Substance: VALSARTAN

REACTIONS (3)
  - Renal impairment [Unknown]
  - Drug dose omission [Unknown]
  - Treatment noncompliance [Unknown]
